FAERS Safety Report 17516945 (Version 1)
Quarter: 2020Q1

REPORT INFORMATION
  Report Type: Report from Study
  Country: FR (occurrence: FR)
  Receive Date: 20200309
  Receipt Date: 20200309
  Transmission Date: 20200409
  Serious: Yes (Hospitalization, Other)
  Sender: FDA-Public Use
  Company Number: FR-JAZZ-2020-FR-003141

PATIENT

DRUGS (20)
  1. DEFITELIO [Suspect]
     Active Substance: DEFIBROTIDE SODIUM
     Dosage: 6.4 MILLIGRAM/KILOGRAM/DAY
     Dates: start: 20190610, end: 20190610
  2. HEPARINE [HEPARIN] [Concomitant]
     Active Substance: HEPARIN SODIUM
     Indication: PRODUCT USED FOR UNKNOWN INDICATION
     Dosage: 200 UNK
  3. DEFITELIO [Suspect]
     Active Substance: DEFIBROTIDE SODIUM
     Dosage: 25.6 MILLIGRAM/KILOGRAM, QD
     Dates: start: 20190609, end: 20190609
  4. DEFITELIO [Suspect]
     Active Substance: DEFIBROTIDE SODIUM
     Dosage: 12.8 MILLIGRAM/KILOGRAM/DAY
     Dates: start: 20190614, end: 20190614
  5. DEFITELIO [Suspect]
     Active Substance: DEFIBROTIDE SODIUM
     Dosage: 6.4 MILLIGRAM/KILOGRAM/DAY
     Dates: start: 20190619, end: 20190619
  6. METHOTREXATE. [Concomitant]
     Active Substance: METHOTREXATE
     Indication: PROPHYLAXIS AGAINST GRAFT VERSUS HOST DISEASE
  7. FLUDARABINE [Concomitant]
     Active Substance: FLUDARABINE PHOSPHATE
     Indication: BONE MARROW CONDITIONING REGIMEN
  8. DEFITELIO [Suspect]
     Active Substance: DEFIBROTIDE SODIUM
     Dosage: 19.2 MILLIGRAM/KILOGRAM/DAY
     Dates: start: 20190601, end: 201906
  9. DEFITELIO [Suspect]
     Active Substance: DEFIBROTIDE SODIUM
     Dosage: 19.2 MILLIGRAM/KILOGRAM/DAY
     Dates: start: 20190615, end: 20190615
  10. DEFITELIO [Suspect]
     Active Substance: DEFIBROTIDE SODIUM
     Dosage: 12.8 MILLIGRAM/KILOGRAM/DAY
     Dates: start: 20190620, end: 20190620
  11. DEFITELIO [Suspect]
     Active Substance: DEFIBROTIDE SODIUM
     Dosage: 32 MILLIGRAM/KILOGRAM/DAY
     Dates: start: 20190608, end: 20190608
  12. DEFITELIO [Suspect]
     Active Substance: DEFIBROTIDE SODIUM
     Dosage: 25.6 MILLIGRAM/KILOGRAM/DAY
     Dates: start: 20190531, end: 2019
  13. DEFITELIO [Suspect]
     Active Substance: DEFIBROTIDE SODIUM
     Dosage: 25.6 MILLIGRAM/KILOGRAM/DAY
     Dates: start: 20190605, end: 201906
  14. DEFITELIO [Suspect]
     Active Substance: DEFIBROTIDE SODIUM
     Dosage: 12.8 MILLIGRAM/KILOGRAM/DAY
     Dates: start: 20190611, end: 201906
  15. URSODEOXYCHOLIC ACID [Concomitant]
     Active Substance: URSODIOL
     Indication: PRODUCT USED FOR UNKNOWN INDICATION
  16. DEFITELIO [Suspect]
     Active Substance: DEFIBROTIDE SODIUM
     Indication: PROPHYLAXIS
     Dosage: 6.4 MILLIGRAM/KILOGRAM/DAY
     Dates: start: 20190526, end: 201905
  17. DEFITELIO [Suspect]
     Active Substance: DEFIBROTIDE SODIUM
     Dosage: 19.2 MILLIGRAM/KILOGRAM/DAY
     Dates: start: 20190607, end: 20190607
  18. DEFITELIO [Suspect]
     Active Substance: DEFIBROTIDE SODIUM
     Dosage: 12.8 MILLIGRAM/KILOGRAM, QD
     Dates: start: 20190616, end: 201906
  19. CYCLOSPORINE. [Suspect]
     Active Substance: CYCLOSPORINE
     Indication: PROPHYLAXIS AGAINST GRAFT VERSUS HOST DISEASE
     Dosage: UNK
     Dates: start: 20190522, end: 20190717
  20. BUSULFAN. [Concomitant]
     Active Substance: BUSULFAN
     Indication: BONE MARROW CONDITIONING REGIMEN

REACTIONS (7)
  - Off label use [Unknown]
  - Klebsiella sepsis [Recovered/Resolved]
  - Respiratory distress [Recovered/Resolved]
  - Haemorrhage [Recovered/Resolved]
  - Acute graft versus host disease [Unknown]
  - Sepsis [Recovered/Resolved]
  - Thrombotic microangiopathy [Recovered/Resolved]

NARRATIVE: CASE EVENT DATE: 20190526
